FAERS Safety Report 6877337-X (Version None)
Quarter: 2010Q3

REPORT INFORMATION
  Report Type: 
  Country: None (occurrence: None)
  Receive Date: 20100727
  Receipt Date: 20090918
  Transmission Date: 20110219
  Serious: No
  Sender: FDA-Public Use
  Company Number: US-ABBOTT-09P-163-0598512-00

PATIENT
  Sex: Male
  Weight: 94.886 kg

DRUGS (1)
  1. SYNTHROID [Suspect]
     Indication: HYPOTHYROIDISM
     Dates: start: 20040101

REACTIONS (1)
  - PROSTATIC SPECIFIC ANTIGEN INCREASED [None]
